FAERS Safety Report 4959550-1 (Version None)
Quarter: 2006Q1

REPORT INFORMATION
  Report Type: 
  Country: None (occurrence: None)
  Receive Date: 20060331
  Receipt Date: 20060320
  Transmission Date: 20060701
  Serious: Yes (Other)
  Sender: FDA-Public Use
  Company Number: NL-GLAXOSMITHKLINE-B0417566A

PATIENT
  Sex: Female

DRUGS (3)
  1. ATOVAQUONE [Suspect]
  2. LAMOTRIGINE [Concomitant]
  3. LAMOTRIGINE [Concomitant]

REACTIONS (3)
  - BREAST CANCER [None]
  - BREAST CANCER FEMALE [None]
  - CONDITION AGGRAVATED [None]
